FAERS Safety Report 7227618-5 (Version None)
Quarter: 2011Q1

REPORT INFORMATION
  Report Type: 
  Country: None (occurrence: None)
  Receive Date: 20110114
  Receipt Date: 20110111
  Transmission Date: 20110831
  Serious: Yes (Other)
  Sender: FDA-Public Use
  Company Number: US-PFIZER INC-2008085210

PATIENT
  Sex: Male
  Weight: 81.633 kg

DRUGS (2)
  1. LIPITOR [Suspect]
     Indication: BLOOD CHOLESTEROL INCREASED
     Dosage: UNK
     Route: 048
  2. LYRICA [Suspect]
     Indication: MUSCLE SPASMS
     Dosage: UNK

REACTIONS (6)
  - ASTHENIA [None]
  - MYALGIA [None]
  - DRUG INEFFECTIVE [None]
  - DYSPNOEA [None]
  - MUSCULAR WEAKNESS [None]
  - MUSCLE SPASMS [None]
